FAERS Safety Report 7597729-3 (Version None)
Quarter: 2011Q3

REPORT INFORMATION
  Report Type: 
  Country: None (occurrence: None)
  Receive Date: 20110708
  Receipt Date: 20110629
  Transmission Date: 20111222
  Serious: Yes (Other)
  Sender: FDA-Public Use
  Company Number: JP-VIIV HEALTHCARE LIMITED-B0683080A

PATIENT
  Age: 41 Year
  Sex: Male

DRUGS (7)
  1. REYATAZ [Suspect]
     Indication: HIV INFECTION
     Route: 065
     Dates: start: 20040117, end: 20090707
  2. TRUVADA [Concomitant]
     Indication: HIV INFECTION
     Dosage: 1IUAX PER DAY
     Route: 048
     Dates: start: 20090708
  3. NORVIR [Suspect]
     Indication: HIV INFECTION
     Route: 065
     Dates: start: 20040712
  4. EPIVIR [Suspect]
     Indication: HIV INFECTION
     Route: 065
     Dates: start: 19980814, end: 20090707
  5. VIREAD [Suspect]
     Indication: HIV INFECTION
     Route: 065
     Dates: start: 20040712, end: 20090707
  6. OCTOCOG ALFA [Concomitant]
     Indication: FACTOR VIII DEFICIENCY
     Dosage: 3IU3 PER DAY
     Route: 042
     Dates: start: 20090401
  7. LEXIVA [Concomitant]
     Indication: HIV INFECTION
     Dosage: 1400MG PER DAY
     Route: 048
     Dates: start: 20090708

REACTIONS (2)
  - GASTRIC ULCER [None]
  - GASTROOESOPHAGEAL REFLUX DISEASE [None]
